FAERS Safety Report 7862111-8 (Version None)
Quarter: 2011Q4

REPORT INFORMATION
  Report Type: 
  Country: None (occurrence: None)
  Receive Date: 20111027
  Receipt Date: 20101108
  Transmission Date: 20120403
  Serious: No
  Sender: FDA-Public Use
  Company Number: US-AMGEN-USASP2010004030

PATIENT
  Age: 48 Year
  Sex: Female

DRUGS (1)
  1. ENBREL [Suspect]
     Indication: PSORIATIC ARTHROPATHY
     Dosage: 50 MG, QWK
     Dates: start: 20060101

REACTIONS (7)
  - THERAPEUTIC RESPONSE DECREASED [None]
  - INJECTION SITE PAIN [None]
  - INJECTION SITE HAEMATOMA [None]
  - DISCOMFORT [None]
  - HEADACHE [None]
  - PAIN [None]
  - MUSCULOSKELETAL STIFFNESS [None]
